FAERS Safety Report 8795022 (Version 2)
Quarter: 2012Q4

REPORT INFORMATION
  Report Type: 
  Country: US (occurrence: US)
  Receive Date: 20120917
  Receipt Date: 20121015
  Transmission Date: 20130627
  Serious: Yes (Death, Hospitalization)
  Sender: FDA-Public Use
  Company Number: US-ROCHE-1094018

PATIENT
  Sex: Female

DRUGS (2)
  1. AVASTIN [Suspect]
     Indication: PANCREATIC CARCINOMA
     Route: 042
     Dates: start: 20060502, end: 20060913
  2. GEMZAR [Concomitant]
     Route: 065
     Dates: end: 20070110

REACTIONS (5)
  - Death [Fatal]
  - Erythema [Unknown]
  - Oedema [Unknown]
  - Diarrhoea [Unknown]
  - Dehydration [Unknown]
